FAERS Safety Report 6756312-X (Version None)
Quarter: 2010Q2

REPORT INFORMATION
  Report Type: 
  Country: None (occurrence: None)
  Receive Date: 20100604
  Receipt Date: 20091006
  Transmission Date: 20101027
  Serious: Yes (Other)
  Sender: FDA-Public Use
  Company Number: PHHY2009GB66336

PATIENT
  Age: 67 Year
  Sex: Male

DRUGS (3)
  1. ZOLEDRONATE [Suspect]
     Indication: OSTEOPOROSIS
     Dosage: 1 INFUSION, IN 3 MONTH
     Dates: start: 20030101, end: 20040101
  2. ALENDRONATE SODIUM [Suspect]
     Indication: OSTEOPOROSIS
     Dosage: UNK
     Dates: start: 20000101
  3. IBANDRONATE SODIUM [Suspect]
     Indication: OSTEOPOROSIS
     Dosage: 1 DOSE, MONTHLY

REACTIONS (4)
  - FEMUR FRACTURE [None]
  - IMPAIRED HEALING [None]
  - INTERNAL FIXATION OF FRACTURE [None]
  - PAIN [None]
